FAERS Safety Report 9405246 (Version 2)
Quarter: 2013Q3

REPORT INFORMATION
  Report Type: Spontaneous
  Country: IT (occurrence: IT)
  Receive Date: 20130717
  Receipt Date: 20130722
  Transmission Date: 20140515
  Serious: Yes (Hospitalization)
  Sender: FDA-Public Use
  Company Number: IT-TEVA-418736ISR

PATIENT
  Age: 38 Year
  Sex: Male

DRUGS (1)
  1. CARBOPLATINO TEVA [Suspect]
     Indication: PERITONEAL MESOTHELIOMA MALIGNANT
     Dosage: 900 MILLIGRAM DAILY;
     Route: 042
     Dates: start: 20130704, end: 20130704

REACTIONS (3)
  - Dyspnoea [Recovered/Resolved]
  - Oxygen saturation decreased [Recovered/Resolved]
  - Generalised erythema [Recovered/Resolved]
